FAERS Safety Report 23370495 (Version 1)
Quarter: 2024Q1

REPORT INFORMATION
  Report Type: Spontaneous
  Country: US (occurrence: US)
  Receive Date: 20240105
  Receipt Date: 20240105
  Transmission Date: 20240410
  Serious: No
  Sender: FDA-Public Use
  Company Number: US-SA-SAC20231227000745

PATIENT
  Age: 81 Year
  Sex: Female

DRUGS (2)
  1. DUPIXENT [Suspect]
     Active Substance: DUPILUMAB
     Indication: Dermatitis atopic
     Dosage: 600MG SQ ON DAY 1
     Route: 058
     Dates: start: 20231121, end: 20231121
  2. DUPIXENT [Suspect]
     Active Substance: DUPILUMAB
     Dosage: 300MG/2ML SQ ON DAY 15, THEN 300MG/2ML SQ EVERY 14 DAYS
     Route: 058
     Dates: start: 202312

REACTIONS (1)
  - Eczema [Unknown]

NARRATIVE: CASE EVENT DATE: 20230101
